FAERS Safety Report 16816614 (Version 1)
Quarter: 2019Q3

REPORT INFORMATION
  Report Type: Spontaneous
  Country: US (occurrence: US)
  Receive Date: 20190725
  Receipt Date: 20190725
  Transmission Date: 20191005
  Serious: No
  Sender: FDA-Public Use
  Company Number: None

PATIENT
  Age: 73 Year
  Sex: Male

DRUGS (1)
  1. BACITRACIN-POLYMYXIN B [Suspect]
     Active Substance: BACITRACIN ZINC\POLYMYXIN B SULFATE
     Indication: KERATOPLASTY
     Route: 031
     Dates: start: 20181101

REACTIONS (2)
  - Recalled product administered [None]
  - Eye pain [None]

NARRATIVE: CASE EVENT DATE: 20190723
